FAERS Safety Report 8760033 (Version 5)
Quarter: 2013Q3

REPORT INFORMATION
  Report Type: Spontaneous
  Country: DE (occurrence: DE)
  Receive Date: 20120829
  Receipt Date: 20130704
  Transmission Date: 20140515
  Serious: Yes (Life-Threatening, Hospitalization, Disabling, Other)
  Sender: FDA-Public Use
  Company Number: DE-ROCHE-1108271

PATIENT
  Age: 55 Year
  Sex: Male
  Weight: 65 kg

DRUGS (16)
  1. MABTHERA [Suspect]
     Indication: B-CELL LYMPHOMA
     Route: 042
     Dates: start: 20101103
  2. MABTHERA [Suspect]
     Route: 042
     Dates: start: 20101124
  3. BENDAMUSTINE [Suspect]
     Indication: B-CELL LYMPHOMA
     Route: 042
     Dates: start: 20101013, end: 20101222
  4. CYCLOPHOSPHAMIDE [Suspect]
     Indication: B-CELL LYMPHOMA
     Route: 042
     Dates: start: 20110118, end: 20110301
  5. PREDNISONE [Suspect]
     Indication: B-CELL LYMPHOMA
     Route: 042
     Dates: start: 20101103, end: 20101124
  6. PREDNISONE [Suspect]
     Route: 042
     Dates: start: 20110118, end: 20110304
  7. DOXORUBICIN [Suspect]
     Indication: B-CELL LYMPHOMA
     Route: 065
     Dates: start: 20110118, end: 20110301
  8. VINCRISTINE [Suspect]
     Indication: B-CELL LYMPHOMA
     Route: 065
     Dates: start: 20110118, end: 20110301
  9. MITOXANTRONE [Concomitant]
     Indication: B-CELL LYMPHOMA
     Route: 065
     Dates: start: 201101, end: 201102
  10. GRANISETRON [Concomitant]
     Route: 042
     Dates: start: 20101013, end: 20110307
  11. CIPROFLOXACIN [Concomitant]
     Indication: INFECTION
     Route: 048
     Dates: start: 20101104, end: 20101108
  12. OMEPRAZOL [Concomitant]
     Indication: DYSPEPSIA
     Route: 048
     Dates: start: 20101202
  13. ALLOPURINOL [Concomitant]
     Indication: HYPERURICAEMIA
     Route: 048
     Dates: start: 20101002, end: 201103
  14. UROMITEXAN [Concomitant]
     Indication: PROPHYLAXIS
     Route: 048
     Dates: start: 20110118
  15. UROMITEXAN [Concomitant]
     Route: 065
     Dates: start: 20110208
  16. UROMITEXAN [Concomitant]
     Route: 065
     Dates: start: 20110301

REACTIONS (6)
  - Progressive multifocal leukoencephalopathy [Recovering/Resolving]
  - Drug hypersensitivity [Unknown]
  - Pyrexia [Unknown]
  - Cytokine release syndrome [Unknown]
  - Subarachnoid haemorrhage [Unknown]
  - Partial seizures [Not Recovered/Not Resolved]
